FAERS Safety Report 18783581 (Version 1)
Quarter: 2021Q1

REPORT INFORMATION
  Report Type: Spontaneous
  Country: US (occurrence: US)
  Receive Date: 20210120
  Receipt Date: 20210120
  Transmission Date: 20210419
  Serious: No
  Sender: FDA-Public Use
  Company Number: US-ELI_LILLY_AND_COMPANY-US202012011019

PATIENT
  Sex: Male

DRUGS (1)
  1. HUMALOG JUNIOR KWIKPEN [Suspect]
     Active Substance: INSULIN LISPRO
     Indication: TYPE 1 DIABETES MELLITUS
     Dosage: UNK, OTHER (CARBOHYDRATE RATIO 1:30)
     Route: 058
     Dates: start: 20200128

REACTIONS (2)
  - Blood glucose increased [Recovered/Resolved]
  - Product dose omission issue [Unknown]
